FAERS Safety Report 25019293 (Version 1)
Quarter: 2025Q1

REPORT INFORMATION
  Report Type: Spontaneous
  Country: GB (occurrence: GB)
  Receive Date: 20250227
  Receipt Date: 20250227
  Transmission Date: 20250408
  Serious: Yes (Other)
  Sender: CURIUM PHARMACEUTICALS
  Company Number: GB-CURIUM-2025000072

PATIENT
  Age: 5 Decade
  Sex: Female

DRUGS (1)
  1. SODIUM IODIDE I-131 [Suspect]
     Active Substance: SODIUM IODIDE I-131
     Indication: Toxic nodular goitre
     Route: 065

REACTIONS (2)
  - Endocrine ophthalmopathy [Recovered/Resolved]
  - Hyperthyroidism [Recovered/Resolved]
